FAERS Safety Report 17099607 (Version 1)
Quarter: 2019Q4

REPORT INFORMATION
  Report Type: Spontaneous
  Country: US (occurrence: US)
  Receive Date: 20191130
  Receipt Date: 20191130
  Transmission Date: 20200122
  Serious: Yes (Death, Hospitalization, Other)
  Sender: FDA-Public Use
  Company Number: None

PATIENT
  Age: 58 Year

DRUGS (3)
  1. LOSARTAN-HCTZ 50-12.5MG [Suspect]
     Active Substance: HYDROCHLOROTHIAZIDE\LOSARTAN POTASSIUM
     Indication: HYPERTENSION
  2. METOPROLOL TARTRATE. [Suspect]
     Active Substance: METOPROLOL TARTRATE
  3. AMLODIPINE BESYLATE 10MG [Suspect]
     Active Substance: AMLODIPINE BESYLATE

REACTIONS (10)
  - Device related infection [None]
  - Lung carcinoma cell type unspecified stage III [None]
  - Seizure [None]
  - Abdominal pain upper [None]
  - Cardiac infection [None]
  - Speech disorder [None]
  - Swelling [None]
  - Gastrointestinal disorder [None]
  - Hepatic failure [None]
  - Movement disorder [None]

NARRATIVE: CASE EVENT DATE: 20190808
